FAERS Safety Report 17885380 (Version 1)
Quarter: 2020Q2

REPORT INFORMATION
  Report Type: Spontaneous
  Country: NL (occurrence: NL)
  Receive Date: 20200611
  Receipt Date: 20200611
  Transmission Date: 20200714
  Serious: Yes (Disabling, Other)
  Sender: FDA-Public Use
  Company Number: NL-ELI_LILLY_AND_COMPANY-NL201301007386

PATIENT
  Age: 45 Year
  Sex: Male
  Weight: 71 kg

DRUGS (2)
  1. ZYPREXA [Suspect]
     Active Substance: OLANZAPINE
     Indication: SCHIZOPHRENIA
     Dosage: 10 MG, BID
     Route: 048
     Dates: start: 19960409
  2. METFORMIN [Concomitant]
     Active Substance: METFORMIN HYDROCHLORIDE
     Dosage: 500 MG, BID
     Dates: start: 19950318

REACTIONS (2)
  - Type 2 diabetes mellitus [Recovering/Resolving]
  - Agitation [Recovering/Resolving]

NARRATIVE: CASE EVENT DATE: 19970309
